FAERS Safety Report 10761192 (Version 1)
Quarter: 2015Q1

REPORT INFORMATION
  Report Type: Spontaneous
  Country: US (occurrence: US)
  Receive Date: 20150204
  Receipt Date: 20150204
  Transmission Date: 20150721
  Serious: No
  Sender: FDA-Public Use
  Company Number: US-PFIZER INC-2015042854

PATIENT
  Sex: Female

DRUGS (1)
  1. CELECOXIB. [Suspect]
     Active Substance: CELECOXIB
     Indication: RHEUMATIC DISORDER
     Dosage: UNK

REACTIONS (5)
  - Product quality issue [Unknown]
  - Pain in extremity [Unknown]
  - Oral pain [Unknown]
  - Rash [Unknown]
  - Pharyngeal oedema [Unknown]
